FAERS Safety Report 25467865 (Version 8)
Quarter: 2025Q4

REPORT INFORMATION
  Report Type: Report from Study
  Country: US (occurrence: US)
  Receive Date: 20250623
  Receipt Date: 20251010
  Transmission Date: 20260118
  Serious: Yes (Other)
  Sender: MALLINCKRODT
  Company Number: US-MALLINCKRODT-MNK202503821

PATIENT
  Sex: Female
  Weight: 212 kg

DRUGS (2)
  1. CORTICOTROPIN [Suspect]
     Active Substance: CORTICOTROPIN
     Indication: Pemphigoid
     Dosage: 80 UNITS
     Dates: start: 20240613
  2. CORTICOTROPIN [Suspect]
     Active Substance: CORTICOTROPIN
     Indication: Corneal disorder

REACTIONS (10)
  - Oropharyngeal discomfort [Recovering/Resolving]
  - Oesophageal disorder [Not Recovered/Not Resolved]
  - Anxiety [Recovering/Resolving]
  - Hiatus hernia [Not Recovered/Not Resolved]
  - Gastritis [Recovering/Resolving]
  - Foreign body sensation in eyes [Recovering/Resolving]
  - Weight decreased [Unknown]
  - Diarrhoea [Not Recovered/Not Resolved]
  - Eye infection [Recovering/Resolving]
  - Sleep deficit [Unknown]
